FAERS Safety Report 24299800 (Version 2)
Quarter: 2024Q3

REPORT INFORMATION
  Report Type: Spontaneous
  Country: US (occurrence: US)
  Receive Date: 20240909
  Receipt Date: 20240911
  Transmission Date: 20241017
  Serious: Yes (Hospitalization, Other)
  Sender: BIOMARIN
  Company Number: US-BIOMARINAP-US-2024-160332

PATIENT

DRUGS (1)
  1. VIMIZIM [Suspect]
     Active Substance: ELOSULFASE ALFA
     Indication: Mucopolysaccharidosis IV
     Dosage: 2 MILLIGRAM/KILOGRAM, QW
     Route: 042
     Dates: start: 20141205

REACTIONS (10)
  - Disease progression [Not Recovered/Not Resolved]
  - Thoracic spinal stenosis [Not Recovered/Not Resolved]
  - Cervical spinal stenosis [Not Recovered/Not Resolved]
  - Thoracic radiculopathy [Not Recovered/Not Resolved]
  - Cervical radiculopathy [Not Recovered/Not Resolved]
  - Myelopathy [Not Recovered/Not Resolved]
  - Spinal support [Unknown]
  - Paraparesis [Not Recovered/Not Resolved]
  - Clonus [Not Recovered/Not Resolved]
  - Mobility decreased [Not Recovered/Not Resolved]

NARRATIVE: CASE EVENT DATE: 20220101
